FAERS Safety Report 17346330 (Version 1)
Quarter: 2020Q1

REPORT INFORMATION
  Report Type: Report from Study
  Country: US (occurrence: US)
  Receive Date: 20200129
  Receipt Date: 20200129
  Transmission Date: 20200409
  Serious: No
  Sender: FDA-Public Use
  Company Number: US-EXELIXIS-CABO-19021617

PATIENT
  Age: 84 Year
  Sex: Male
  Weight: 76.64 kg

DRUGS (1)
  1. CABOMETYX [Suspect]
     Active Substance: CABOZANTINIB S-MALATE
     Indication: HEPATIC CANCER
     Dosage: 20 MG, QD
     Route: 048
     Dates: start: 20190419, end: 20190620

REACTIONS (8)
  - Blood alkaline phosphatase increased [Unknown]
  - Gastrooesophageal reflux disease [Unknown]
  - Gamma-glutamyltransferase increased [Unknown]
  - Pruritus [Unknown]
  - Fatigue [Unknown]
  - Alpha 1 foetoprotein increased [Unknown]
  - Hypophagia [Unknown]
  - Diarrhoea [Unknown]

NARRATIVE: CASE EVENT DATE: 201904
